FAERS Safety Report 20700812 (Version 1)
Quarter: 2022Q2

REPORT INFORMATION
  Report Type: Spontaneous
  Country: US (occurrence: None)
  Receive Date: 20220411
  Receipt Date: 20220411
  Transmission Date: 20220721
  Serious: Yes (Hospitalization)
  Sender: FDA-Public Use
  Company Number: None

PATIENT
  Age: 77 Year
  Sex: Female
  Weight: 71.67 kg

DRUGS (12)
  1. EXEMESTANE [Suspect]
     Active Substance: EXEMESTANE
     Indication: Breast cancer
     Dosage: FREQUENCY : DAILY;?
     Route: 048
     Dates: start: 20210102
  2. IBRANCE [Suspect]
     Active Substance: PALBOCICLIB
  3. HYDROCHLOROTHIAZIDE [Concomitant]
     Active Substance: HYDROCHLOROTHIAZIDE
  4. LEVETIRACETAM [Concomitant]
     Active Substance: LEVETIRACETAM
  5. ESSIAC [Concomitant]
  6. GARLIC [Concomitant]
     Active Substance: GARLIC
  7. HERBALS\TURMERIC [Concomitant]
     Active Substance: HERBALS\TURMERIC
  8. VITAMIN D3 [Concomitant]
     Active Substance: CHOLECALCIFEROL
  9. Ester C [Concomitant]
  10. Lutigold [Concomitant]
  11. OMEGA 7 [Concomitant]
  12. BILBERRY [Concomitant]
     Active Substance: BILBERRY

REACTIONS (1)
  - Seizure [None]

NARRATIVE: CASE EVENT DATE: 20210718
